FAERS Safety Report 12985552 (Version 8)
Quarter: 2017Q1

REPORT INFORMATION
  Report Type: Spontaneous
  Country: US (occurrence: US)
  Receive Date: 20161130
  Receipt Date: 20170329
  Transmission Date: 20170428
  Serious: Yes (Other)
  Sender: FDA-Public Use
  Company Number: PHEH2016US031109

PATIENT
  Sex: Female
  Weight: 81.63 kg

DRUGS (2)
  1. ZOFRAN [Suspect]
     Active Substance: ONDANSETRON HYDROCHLORIDE
     Indication: PRODUCT USED FOR UNKNOWN INDICATION
     Dosage: UNK
     Route: 065
  2. ZOFRAN [Suspect]
     Active Substance: ONDANSETRON HYDROCHLORIDE
     Indication: VOMITING IN PREGNANCY
     Dosage: 08 MG, PRN
     Route: 048
     Dates: start: 20030108, end: 2005

REACTIONS (5)
  - Emotional distress [Unknown]
  - Injury [Unknown]
  - Gestational hypertension [Unknown]
  - Product use issue [Unknown]
  - Maternal exposure during pregnancy [Unknown]
